FAERS Safety Report 5481276-9 (Version None)
Quarter: 2007Q4

REPORT INFORMATION
  Report Type: 
  Country: None (occurrence: None)
  Receive Date: 20071010
  Receipt Date: 20070415
  Transmission Date: 20080405
  Serious: Yes (Death)
  Sender: FDA-Public Use
  Company Number: IL-NOVOPROD-262769

PATIENT
  Age: 18 Year
  Sex: Male

DRUGS (1)
  1. NOVOSEVEN [Suspect]
     Indication: HAEMORRHAGE
     Dosage: 7.2 MG, UNK
     Route: 042
     Dates: start: 20070402, end: 20070402

REACTIONS (1)
  - DRUG INEFFECTIVE [None]
